FAERS Safety Report 8275752-3 (Version None)
Quarter: 2012Q2

REPORT INFORMATION
  Report Type: 
  Country: None (occurrence: None)
  Receive Date: 20120410
  Receipt Date: 20120410
  Transmission Date: 20120825
  Serious: No
  Sender: FDA-Public Use
  Company Number: None

PATIENT
  Age: 48 Year
  Sex: Male

DRUGS (1)
  1. CHLORDIAZEPOXIDE [Suspect]
     Indication: ALCOHOL WITHDRAWAL SYNDROME
     Dates: start: 20111008, end: 20111009

REACTIONS (3)
  - LIP SWELLING [None]
  - DYSPHONIA [None]
  - THROAT TIGHTNESS [None]
